FAERS Safety Report 21330658 (Version 3)
Quarter: 2022Q4

REPORT INFORMATION
  Report Type: Spontaneous
  Country: US (occurrence: US)
  Receive Date: 20220913
  Receipt Date: 20221116
  Transmission Date: 20230112
  Serious: Yes (Hospitalization, Other)
  Sender: FDA-Public Use
  Company Number: US-BRISTOL-MYERS SQUIBB COMPANY-2022-102988

PATIENT
  Age: 75 Year
  Sex: Female

DRUGS (3)
  1. REVLIMID [Suspect]
     Active Substance: LENALIDOMIDE
     Indication: Plasma cell myeloma in remission
     Dosage: TAKE 1 CAPSULE BY MOUTH EVERY DAY FOR 21 DAYS THEN OFF FOR 7 DAYS
     Route: 048
     Dates: start: 20210820
  2. REVLIMID [Suspect]
     Active Substance: LENALIDOMIDE
     Dosage: LAST TAKEN ON 18-SEP-2022
     Route: 048
     Dates: start: 2022
  3. REVLIMID [Suspect]
     Active Substance: LENALIDOMIDE
     Dosage: TAKE 1 CAPSULE BY MOUTH EVERY DAY FOR 21 DAYS WITH 1 WEEK BREAK
     Route: 048

REACTIONS (4)
  - Loss of consciousness [Unknown]
  - Head injury [Unknown]
  - Haemorrhage intracranial [Recovered/Resolved]
  - Bradycardia [Unknown]
